FAERS Safety Report 25979660 (Version 1)
Quarter: 2025Q4

REPORT INFORMATION
  Report Type: Spontaneous
  Country: US (occurrence: US)
  Receive Date: 20251030
  Receipt Date: 20251030
  Transmission Date: 20260118
  Serious: Yes (Hospitalization)
  Sender: BAYER HEALTHCARE PHARMACEUTICALS INC.
  Company Number: US-BAYER-2025A142624

PATIENT
  Age: 81 Year
  Sex: Male

DRUGS (2)
  1. NUBEQA [Suspect]
     Active Substance: DAROLUTAMIDE
     Dosage: UNK
     Route: 048
     Dates: end: 2025
  2. NUBEQA [Suspect]
     Active Substance: DAROLUTAMIDE
     Dosage: UNK
     Route: 048
     Dates: start: 2025, end: 2025

REACTIONS (2)
  - Hospitalisation [None]
  - Throat irritation [Recovered/Resolved]

NARRATIVE: CASE EVENT DATE: 20250101
